FAERS Safety Report 10135688 (Version 2)
Quarter: 2015Q1

REPORT INFORMATION
  Report Type: Other
  Country: US (occurrence: US)
  Receive Date: 20140428
  Receipt Date: 20150218
  Transmission Date: 20150720
  Serious: Yes (Hospitalization, Other)
  Sender: FDA-Public Use
  Company Number: US-GSKPPD-2014GSK037237

PATIENT
  Age: 59 Year
  Sex: Male

DRUGS (7)
  1. LASIX [Concomitant]
     Active Substance: FUROSEMIDE
  2. MAVIK [Concomitant]
     Active Substance: TRANDOLAPRIL
     Dates: end: 200312
  3. AMIODARONE [Concomitant]
     Active Substance: AMIODARONE
  4. ASPIRIN. [Concomitant]
     Active Substance: ASPIRIN
  5. PLAVIX [Concomitant]
     Active Substance: CLOPIDOGREL BISULFATE
  6. AVANDIA [Suspect]
     Active Substance: ROSIGLITAZONE MALEATE
     Indication: DIABETES MELLITUS
     Dosage: DATES OF AVANDIA USE COULD NOT BE CONFIRMED IN RECORDS REVIEWED.
     Route: 048
     Dates: end: 200312
  7. COUMADINE [Concomitant]
     Active Substance: WARFARIN SODIUM
     Dates: end: 200312

REACTIONS (1)
  - Coronary arterial stent insertion [Recovered/Resolved]

NARRATIVE: CASE EVENT DATE: 20031230
